FAERS Safety Report 6441060-6 (Version None)
Quarter: 2009Q4

REPORT INFORMATION
  Report Type: 
  Country: None (occurrence: None)
  Receive Date: 20091116
  Receipt Date: 20091106
  Transmission Date: 20100525
  Serious: Yes (Hospitalization)
  Sender: FDA-Public Use
  Company Number: US-ROCHE-667602

PATIENT
  Sex: Female
  Weight: 53.6 kg

DRUGS (1)
  1. BONIVA [Suspect]
     Indication: DRUG USE FOR UNKNOWN INDICATION
     Dosage: DATE OF LAST DOSE: 01 NOVEMBER 2009
     Route: 048

REACTIONS (1)
  - ULCER HAEMORRHAGE [None]
